FAERS Safety Report 4360454-6 (Version None)
Quarter: 2004Q2

REPORT INFORMATION
  Report Type: 
  Country: None (occurrence: None)
  Receive Date: 20040514
  Receipt Date: 20040428
  Transmission Date: 20050107
  Serious: Yes (Hospitalization)
  Sender: FDA-Public Use
  Company Number: DSA_24167_2004

PATIENT
  Age: 69 Year
  Sex: Female

DRUGS (3)
  1. ENALAPRIL [Suspect]
     Indication: HYPERTENSION
     Dosage: 20 MG Q DAY; PO
     Route: 048
     Dates: start: 19890101, end: 20010701
  2. ESTROGEN REPLACEMENT THERAPY [Concomitant]
  3. LOVASTATIN [Concomitant]

REACTIONS (8)
  - ABDOMINAL PAIN [None]
  - ANGIONEUROTIC OEDEMA [None]
  - ANTINUCLEAR ANTIBODY POSITIVE [None]
  - DRUG INEFFECTIVE [None]
  - GASTROINTESTINAL OEDEMA [None]
  - GINGIVAL SWELLING [None]
  - SWELLING FACE [None]
  - VOMITING [None]
